FAERS Safety Report 18439447 (Version 3)
Quarter: 2021Q2

REPORT INFORMATION
  Report Type: Spontaneous
  Country: US (occurrence: US)
  Receive Date: 20201029
  Receipt Date: 20210421
  Transmission Date: 20210717
  Serious: No
  Sender: FDA-Public Use
  Company Number: US-AKCEA THERAPEUTICS-2020IS001384

PATIENT
  Sex: Female

DRUGS (2)
  1. TEGSEDI [Suspect]
     Active Substance: INOTERSEN SODIUM
     Indication: HEREDITARY NEUROPATHIC AMYLOIDOSIS
     Route: 058
  2. ISSD (INTEGRATED SYRINGE SAFETY DEVICE [Suspect]
     Active Substance: DEVICE

REACTIONS (10)
  - Bacterial test positive [Not Recovered/Not Resolved]
  - Creatinine urine abnormal [Unknown]
  - Urine abnormality [Unknown]
  - Nitrite urine present [Unknown]
  - Red blood cells urine positive [Unknown]
  - Urine protein/creatinine ratio increased [Not Recovered/Not Resolved]
  - Protein urine present [Unknown]
  - Urine leukocyte esterase positive [Unknown]
  - Blood creatinine increased [Not Recovered/Not Resolved]
  - Urinary occult blood positive [Not Recovered/Not Resolved]
